FAERS Safety Report 21132376 (Version 2)
Quarter: 2022Q3

REPORT INFORMATION
  Report Type: Spontaneous
  Country: US (occurrence: None)
  Receive Date: 20220726
  Receipt Date: 20220804
  Transmission Date: 20221027
  Serious: No
  Sender: FDA-Public Use
  Company Number: 2022A261028

PATIENT
  Age: 79 Year
  Sex: Female

DRUGS (1)
  1. BREZTRI [Suspect]
     Active Substance: BUDESONIDE\FORMOTEROL\GLYCOPYRROLATE
     Indication: Chronic obstructive pulmonary disease
     Dosage: (160MCG/9MCG/4.8MCG)
     Route: 055
     Dates: start: 202206

REACTIONS (4)
  - Cough [Not Recovered/Not Resolved]
  - Wrong technique in product usage process [Unknown]
  - Device delivery system issue [Unknown]
  - Product label confusion [Unknown]

NARRATIVE: CASE EVENT DATE: 20220601
